FAERS Safety Report 15482421 (Version 1)
Quarter: 2018Q4

REPORT INFORMATION
  Report Type: Spontaneous
  Country: FR (occurrence: FR)
  Receive Date: 20181010
  Receipt Date: 20181010
  Transmission Date: 20190205
  Serious: Yes (Other)
  Sender: FDA-Public Use
  Company Number: FR-GLAXOSMITHKLINE-FR2018179543

PATIENT
  Age: 6 Year
  Sex: Female

DRUGS (19)
  1. ORACILLINE [Suspect]
     Active Substance: PENICILLIN V
     Indication: INFECTION PROPHYLAXIS
     Dosage: UNK
     Route: 048
  2. PHOSPHONEUROS [Concomitant]
     Active Substance: CALCIUM PHOSPHATE, DIBASIC, ANHYDROUS\MAGNESIUM GLYCEROPHOSPHATE\PHOSPHORIC ACID\SODIUM PHOSPHATE, DIBASIC
     Indication: PRODUCT USED FOR UNKNOWN INDICATION
     Dosage: UNK
     Route: 048
     Dates: start: 201805
  3. VANCOMYCINE [Suspect]
     Active Substance: VANCOMYCIN
     Dosage: INTERMITTENT IN MAY 2018 AS WELL AS JULY, AUGUST, SEPTEMBER 2018
     Route: 042
     Dates: start: 201808
  4. MERONEM [Suspect]
     Active Substance: MEROPENEM
     Dosage: INTERMITTENTLY IN MAY 2018 AS WELL AS JULY, AUGUST, SEPTEMBER 2018
     Route: 042
     Dates: start: 201808
  5. MAG 2 [Concomitant]
     Active Substance: MAGNESIUM CHLORIDE
     Indication: PRODUCT USED FOR UNKNOWN INDICATION
     Dosage: UNK
     Route: 048
     Dates: start: 201805
  6. ZOVIRAX [Suspect]
     Active Substance: ACYCLOVIR
     Indication: INFECTION PROPHYLAXIS
     Dosage: UNK
     Route: 048
  7. NEORAL [Concomitant]
     Active Substance: CYCLOSPORINE
     Indication: PRODUCT USED FOR UNKNOWN INDICATION
     Dosage: UNK
     Route: 048
     Dates: start: 201804, end: 201807
  8. ARACYTINE [Suspect]
     Active Substance: CYTARABINE
     Indication: LYMPHOCYTIC LEUKAEMIA
     Dosage: 30 MG, UNK
     Route: 042
     Dates: start: 201805
  9. VANCOMYCINE [Suspect]
     Active Substance: VANCOMYCIN
     Dosage: INTERMITTENT IN MAY 2018 AS WELL AS JULY, AUGUST, SEPTEMBER 2018
     Route: 042
     Dates: start: 201807
  10. DIFFU K [Concomitant]
     Active Substance: POTASSIUM CHLORIDE
     Indication: PRODUCT USED FOR UNKNOWN INDICATION
     Dosage: UNK
     Route: 048
     Dates: start: 201805
  11. HYDROCORTISONE. [Suspect]
     Active Substance: HYDROCORTISONE
     Indication: LYMPHOCYTIC LEUKAEMIA
     Dosage: 15 MG, UNK
     Route: 042
     Dates: start: 201805
  12. VANCOMYCINE [Suspect]
     Active Substance: VANCOMYCIN
     Indication: PRODUCT USED FOR UNKNOWN INDICATION
     Dosage: INTERMITTENT IN MAY 2018 AS WELL AS JULY, AUGUST, SEPTEMBER 2018
     Route: 042
     Dates: start: 201805
  13. MERONEM [Suspect]
     Active Substance: MEROPENEM
     Indication: PRODUCT USED FOR UNKNOWN INDICATION
     Dosage: INTERMITTENTLY IN MAY 2018 AS WELL AS JULY, AUGUST, SEPTEMBER 2018
     Route: 042
     Dates: start: 201805
  14. MERONEM [Suspect]
     Active Substance: MEROPENEM
     Dosage: INTERMITTENTLY IN MAY 2018 AS WELL AS JULY, AUGUST, SEPTEMBER 2018
     Route: 042
     Dates: start: 201807
  15. METHOTREXATE. [Suspect]
     Active Substance: METHOTREXATE
     Indication: LYMPHOCYTIC LEUKAEMIA
     Dosage: 60 MG, UNK
     Route: 042
     Dates: start: 201805
  16. ZOPHREN [Concomitant]
     Active Substance: ONDANSETRON
     Indication: PRODUCT USED FOR UNKNOWN INDICATION
     Dosage: UNK
     Route: 048
     Dates: start: 201805
  17. SPRYCEL [Suspect]
     Active Substance: DASATINIB
     Indication: LYMPHOCYTIC LEUKAEMIA
     Dosage: TREATMENT ALREADY TAKEN FROM NOVEMBER 2017 TO JANUARY 2018
     Route: 048
     Dates: start: 201805
  18. VANCOMYCINE [Suspect]
     Active Substance: VANCOMYCIN
     Dosage: INTERMITTENT IN MAY 2018 AS WELL AS JULY, AUGUST, SEPTEMBER 2018
     Route: 042
     Dates: start: 201809
  19. MERONEM [Suspect]
     Active Substance: MEROPENEM
     Dosage: INTERMITTENTLY IN MAY 2018 AS WELL AS JULY, AUGUST, SEPTEMBER 2018
     Route: 042
     Dates: start: 201809

REACTIONS (1)
  - Enterocolitis haemorrhagic [Not Recovered/Not Resolved]

NARRATIVE: CASE EVENT DATE: 201806
